FAERS Safety Report 21558118 (Version 2)
Quarter: 2022Q4

REPORT INFORMATION
  Report Type: Spontaneous
  Country: US (occurrence: US)
  Receive Date: 20221107
  Receipt Date: 20221112
  Transmission Date: 20230113
  Serious: Yes (Other)
  Sender: FDA-Public Use
  Company Number: US-UNITED THERAPEUTICS-UNT-2022-009969

PATIENT
  Age: 63 Year
  Sex: Female
  Weight: 50.794 kg

DRUGS (26)
  1. REMODULIN [Suspect]
     Active Substance: TREPROSTINIL
     Indication: Pulmonary arterial hypertension
     Dosage: UNK, CONTINUING
     Route: 058
     Dates: start: 20161110
  2. REMODULIN [Suspect]
     Active Substance: TREPROSTINIL
     Dosage: 0.111 ?G/KG (PRE-FILLED WITH 3 ML PER CASSETTE AT RATE OF 34 MCL/HOUR), CONTINUING
     Route: 058
     Dates: start: 20161110
  3. REMODULIN [Suspect]
     Active Substance: TREPROSTINIL
     Dosage: 0.111 ?G/KG (PRE-FILLED WITH 3 ML PER CASSETTE AT RATE OF 33 MCL/HOUR), CONTINUING
     Route: 058
  4. REMODULIN [Suspect]
     Active Substance: TREPROSTINIL
     Dosage: 0.0935 ?G/KG (PREFILLED WITH 2.6 ML PER CASSETTE AT PUMP RATE 28 MCL/HOUR), CONTINUING
     Route: 058
  5. REMODULIN [Suspect]
     Active Substance: TREPROSTINIL
     Dosage: 0.090 ?G/KG (PREFILLED WITH 2.6ML PER CASSETTE AT PUMP RATE 28 MCL/HOUR), CONTINUING CONTINUING
     Route: 058
  6. REMODULIN [Suspect]
     Active Substance: TREPROSTINIL
     Dosage: UNK [PUMP RATE 0.34 ML/HR], CONTINUING
     Route: 058
  7. ADEMPAS [Suspect]
     Active Substance: RIOCIGUAT
     Indication: Product used for unknown indication
     Dosage: UNK
     Route: 065
  8. INDOMETHACIN [Suspect]
     Active Substance: INDOMETHACIN
     Indication: Product used for unknown indication
     Dosage: UNK
     Route: 065
  9. OPSUMIT [Concomitant]
     Active Substance: MACITENTAN
     Indication: Pulmonary arterial hypertension
     Dosage: 10 MG, QD
     Route: 048
  10. TADALAFIL [Concomitant]
     Active Substance: TADALAFIL
     Indication: Pulmonary hypertension
     Dosage: 40 MG, DAILY
     Route: 048
  11. WARFARIN SODIUM [Concomitant]
     Active Substance: WARFARIN SODIUM
     Indication: Product used for unknown indication
     Dosage: 5 MG, QD [ALTERNATE 5 AND 2.5 MG EVERY OTHER DAY]
     Route: 048
  12. ALYQ [Concomitant]
     Active Substance: TADALAFIL
     Indication: Product used for unknown indication
     Dosage: UNK
     Route: 065
  13. COMBIVENT RESPIMAT [Concomitant]
     Active Substance: ALBUTEROL SULFATE\IPRATROPIUM BROMIDE
     Indication: Product used for unknown indication
     Dosage: INHALE ONE PUFF BY MOUTH , QID AS NEEDED
  14. FLUTICASONE PROPIONATE [Concomitant]
     Active Substance: FLUTICASONE PROPIONATE
     Indication: Product used for unknown indication
     Dosage: INHALE 2 SPRAYS IN EACH NOSTRIL, QD AS NEEDED
  15. GABAPENTIN [Concomitant]
     Active Substance: GABAPENTIN
     Indication: Product used for unknown indication
     Dosage: 200 MG, TID
     Route: 048
  16. HYDROXYZINE HYDROCHLORIDE [Concomitant]
     Active Substance: HYDROXYZINE HYDROCHLORIDE
     Indication: Product used for unknown indication
     Dosage: 25 MG, TID
     Route: 048
  17. LIDOCAINE [Concomitant]
     Active Substance: LIDOCAINE
     Indication: Product used for unknown indication
     Route: 061
  18. OMEPRAZOLE [Concomitant]
     Active Substance: OMEPRAZOLE
     Indication: Product used for unknown indication
     Dosage: 20 MG, QD
     Route: 048
  19. OXYGEN [Concomitant]
     Active Substance: OXYGEN
     Indication: Product used for unknown indication
     Dosage: 4 LITER, BED TIME
     Route: 065
  20. POTASSIUM CHLORIDE [Concomitant]
     Active Substance: POTASSIUM CHLORIDE
     Indication: Product used for unknown indication
     Dosage: 20 MEQ, QD
     Route: 048
  21. PROMETHAZINE [Concomitant]
     Active Substance: PROMETHAZINE HYDROCHLORIDE
     Indication: Product used for unknown indication
     Dosage: 25 MG, TID, PRN
     Route: 048
  22. TRIAMCINOLONE ACETONIDE [Concomitant]
     Active Substance: TRIAMCINOLONE ACETONIDE
     Indication: Product used for unknown indication
     Dosage: APPLY TO THE AFFECTED AREAS OF THE HAND TWICE A DAY UP TO 2 WEEKS ON, 2 WEEKS OFF
     Route: 061
  23. VITAMIN B6 [Concomitant]
     Active Substance: PYRIDOXINE HYDROCHLORIDE
     Indication: Product used for unknown indication
     Dosage: 100 MG, QD
     Route: 048
  24. VITAMIN D3 [Concomitant]
     Active Substance: CHOLECALCIFEROL
     Indication: Product used for unknown indication
     Dosage: 50 MCG (2,000 UNIT), QD
     Route: 048
  25. ADCIRCA [Concomitant]
     Active Substance: TADALAFIL
     Indication: Product used for unknown indication
     Route: 065
  26. MAGNESIUM OXIDE [Concomitant]
     Active Substance: MAGNESIUM OXIDE
     Indication: Product used for unknown indication
     Dosage: UNK (ONE TABLET ONCE DAILY)
     Route: 065

REACTIONS (27)
  - Nephrolithiasis [Unknown]
  - Hydronephrosis [Unknown]
  - Hypokalaemia [Recovering/Resolving]
  - Hypoxia [Unknown]
  - Drug hypersensitivity [Unknown]
  - Dermatitis contact [Unknown]
  - Anaemia [Recovered/Resolved]
  - Pain [Unknown]
  - Synovial cyst [Unknown]
  - Weight decreased [Not Recovered/Not Resolved]
  - Rectal prolapse [Unknown]
  - Vertigo [Unknown]
  - Dyspnoea [Recovered/Resolved]
  - Anal incontinence [Unknown]
  - Diarrhoea [Not Recovered/Not Resolved]
  - Exercise tolerance decreased [Unknown]
  - Myalgia [Unknown]
  - Sleep disorder [Unknown]
  - Temperature intolerance [Unknown]
  - Rhinorrhoea [Unknown]
  - Joint swelling [Unknown]
  - Nasal pruritus [Unknown]
  - Osteoarthritis [Unknown]
  - Mesenteritis [Unknown]
  - Infusion site pain [Unknown]
  - Treatment failure [Unknown]
  - Dyspnoea exertional [Unknown]

NARRATIVE: CASE EVENT DATE: 20161110
